FAERS Safety Report 24236859 (Version 1)
Quarter: 2024Q3

REPORT INFORMATION
  Report Type: Spontaneous
  Country: US (occurrence: US)
  Receive Date: 20240822
  Receipt Date: 20240822
  Transmission Date: 20241016
  Serious: No
  Sender: HIKMA
  Company Number: US-HIKMA PHARMACEUTICALS USA INC.-US-H14001-23-66320

PATIENT
  Sex: Female

DRUGS (1)
  1. CLOTRIMAZOLE TROCHE [Suspect]
     Active Substance: CLOTRIMAZOLE
     Indication: Oral candidiasis
     Dosage: 5 TABLETS PER DAY
     Route: 065
     Dates: start: 20230310

REACTIONS (2)
  - Back pain [Unknown]
  - Nausea [Unknown]
